FAERS Safety Report 7136064-4 (Version None)
Quarter: 2010Q4

REPORT INFORMATION
  Report Type: 
  Country: None (occurrence: None)
  Receive Date: 20101204
  Receipt Date: 20101130
  Transmission Date: 20110411
  Serious: Yes (Life-Threatening, Hospitalization)
  Sender: FDA-Public Use
  Company Number: DE-BAYER-2010-000133

PATIENT

DRUGS (1)
  1. AVELOX [Suspect]
     Indication: SINOBRONCHITIS
     Dosage: UNK
     Dates: start: 20101126

REACTIONS (3)
  - DYSPNOEA [None]
  - THROAT TIGHTNESS [None]
  - URTICARIA [None]
